FAERS Safety Report 7594224-2 (Version None)
Quarter: 2011Q3

REPORT INFORMATION
  Report Type: 
  Country: None (occurrence: None)
  Receive Date: 20110706
  Receipt Date: 20110627
  Transmission Date: 20111222
  Serious: Yes (Other)
  Sender: FDA-Public Use
  Company Number: AU-ASTRAZENECA-2011SE38357

PATIENT
  Sex: Male

DRUGS (3)
  1. VITAMIN B [Concomitant]
  2. SOTALOL HCL [Concomitant]
  3. BUDESONIDE [Suspect]
     Route: 045
     Dates: start: 20110622

REACTIONS (2)
  - HEART RATE ABNORMAL [None]
  - HEART RATE INCREASED [None]
